FAERS Safety Report 6751724-2 (Version None)
Quarter: 2010Q2

REPORT INFORMATION
  Report Type: 
  Country: None (occurrence: None)
  Receive Date: 20100602
  Receipt Date: 20100519
  Transmission Date: 20101027
  Serious: Yes (Hospitalization)
  Sender: FDA-Public Use
  Company Number: FR-ASTRAZENECA-2010SE23146

PATIENT
  Age: 22941 Day
  Sex: Female

DRUGS (1)
  1. NEXIUM [Suspect]
     Route: 042
     Dates: start: 20100406, end: 20100425

REACTIONS (1)
  - BONE MARROW FAILURE [None]
